FAERS Safety Report 21049117 (Version 3)
Quarter: 2022Q3

REPORT INFORMATION
  Report Type: Report from Study
  Country: CA (occurrence: CA)
  Receive Date: 20220706
  Receipt Date: 20220802
  Transmission Date: 20221027
  Serious: Yes (Other)
  Sender: FDA-Public Use
  Company Number: CA-JNJFOC-20220700985

PATIENT
  Age: 12 Year
  Sex: Female

DRUGS (1)
  1. REMICADE [Suspect]
     Active Substance: INFLIXIMAB
     Indication: Colitis ulcerative
     Dosage: ON 30-JUN-2022, THE PATIENT COMPLETED HIS PARTIAL MAYO SURVEY AND RECEIVED HIS 5TH INFUSION OF 400 M
     Route: 042
     Dates: start: 20220407

REACTIONS (6)
  - Haematochezia [Recovered/Resolved]
  - Frequent bowel movements [Unknown]
  - Nausea [Unknown]
  - Mucous stools [Recovered/Resolved]
  - Muscle spasms [Not Recovered/Not Resolved]
  - Therapeutic product effect decreased [Unknown]

NARRATIVE: CASE EVENT DATE: 20220101
